FAERS Safety Report 6426821-1 (Version None)
Quarter: 2009Q4

REPORT INFORMATION
  Report Type: 
  Country: None (occurrence: None)
  Receive Date: 20091104
  Receipt Date: 20091026
  Transmission Date: 20100525
  Serious: Yes (Other)
  Sender: FDA-Public Use
  Company Number: US-BAXTER-2009BH014992

PATIENT

DRUGS (3)
  1. DEXAMETHASONE [Suspect]
     Indication: NEUROMUSCULAR BLOCKING THERAPY
     Route: 050
     Dates: start: 20090916, end: 20090916
  2. NAROPIN [Suspect]
     Indication: NEUROMUSCULAR BLOCKING THERAPY
     Route: 050
     Dates: start: 20090916, end: 20090916
  3. CARBOKAINE [Suspect]
     Indication: NEUROMUSCULAR BLOCKING THERAPY
     Route: 065
     Dates: start: 20090916, end: 20090916

REACTIONS (1)
  - UNRESPONSIVE TO STIMULI [None]
